FAERS Safety Report 5139852-9 (Version None)
Quarter: 2006Q4

REPORT INFORMATION
  Report Type: 
  Country: None (occurrence: None)
  Receive Date: 20061025
  Receipt Date: 20061025
  Transmission Date: 20070319
  Serious: Yes (Other)
  Sender: FDA-Public Use
  Company Number: None

PATIENT
  Age: 59 Year
  Sex: Male
  Weight: 92.0802 kg

DRUGS (6)
  1. WARFARIN SODIUM [Suspect]
     Indication: CEREBROVASCULAR ACCIDENT
     Dosage: 7.5 MG DAILY PO
     Route: 048
     Dates: start: 20000101, end: 20060101
  2. WARFARIN SODIUM [Suspect]
     Indication: CEREBROVASCULAR ACCIDENT
     Dosage: 7.5 MG DAILY PO
     Route: 048
     Dates: start: 20050406, end: 20060801
  3. RANITIDINE [Concomitant]
  4. NITROGLYCERIN [Concomitant]
  5. ATENOLOL [Concomitant]
  6. CLOTRIMAZOLE CR [Concomitant]

REACTIONS (2)
  - PUNCTURE SITE HAEMORRHAGE [None]
  - REFUSAL OF TREATMENT BY PATIENT [None]
